FAERS Safety Report 11228785 (Version 1)
Quarter: 2015Q2

REPORT INFORMATION
  Report Type: Spontaneous
  Country: BR (occurrence: BR)
  Receive Date: 20150630
  Receipt Date: 20150630
  Transmission Date: 20150821
  Serious: Yes (Hospitalization)
  Sender: FDA-Public Use
  Company Number: BR-FRESENIUS KABI-FK201503017

PATIENT
  Age: 64 Year
  Sex: Female

DRUGS (1)
  1. DOXYCYCLINE FOR INJECTION (MANUFACTURER UNKNOWN) [Suspect]
     Active Substance: DOXYCYCLINE
     Indication: ERYSIPELAS
     Route: 065

REACTIONS (1)
  - Drug eruption [Recovered/Resolved]
